FAERS Safety Report 20884892 (Version 1)
Quarter: 2022Q2

REPORT INFORMATION
  Report Type: Spontaneous
  Country: CA (occurrence: CA)
  Receive Date: 20220527
  Receipt Date: 20220527
  Transmission Date: 20220721
  Serious: Yes (Hospitalization, Other)
  Sender: FDA-Public Use
  Company Number: CA-OTSUKA-2022_028839

PATIENT
  Age: 6 Decade
  Sex: Male

DRUGS (15)
  1. ARIPIPRAZOLE [Suspect]
     Active Substance: ARIPIPRAZOLE
     Indication: Product used for unknown indication
     Dosage: UNK
     Route: 065
  2. ASENAPINE MALEATE [Suspect]
     Active Substance: ASENAPINE MALEATE
     Indication: Depression
     Dosage: 5 MG, BID
     Route: 048
  3. ASENAPINE MALEATE [Suspect]
     Active Substance: ASENAPINE MALEATE
     Dosage: 5 MG, QD
     Route: 048
  4. BENZTROPINE [Suspect]
     Active Substance: BENZTROPINE
     Indication: Depression
     Dosage: 2 MG, QD
     Route: 048
  5. PAROXETINE [Suspect]
     Active Substance: PAROXETINE
     Indication: Depression
     Dosage: 20 MG, QD
     Route: 048
  6. PAROXETINE [Suspect]
     Active Substance: PAROXETINE
     Dosage: 10 MG, QD
     Route: 048
  7. RISPERIDONE [Suspect]
     Active Substance: RISPERIDONE
     Indication: Depression
     Dosage: UNK
     Route: 065
  8. BISOPROLOL [Concomitant]
     Active Substance: BISOPROLOL
     Indication: Hypertension
     Dosage: 5 MG, QD
     Route: 048
  9. GABAPENTIN [Concomitant]
     Active Substance: GABAPENTIN
     Indication: Product used for unknown indication
     Dosage: 600 MG, EVERY 8 HOURS
     Route: 048
  10. DDAVP [Concomitant]
     Active Substance: DESMOPRESSIN ACETATE
     Indication: Nephrogenic diabetes insipidus
     Dosage: 240 MG, QD
     Route: 048
  11. MEDROXYPROGESTERONE [Concomitant]
     Active Substance: MEDROXYPROGESTERONE
     Indication: Product used for unknown indication
     Dosage: 200 MG, QD
     Route: 048
  12. QUINAPRIL [Concomitant]
     Active Substance: QUINAPRIL
     Indication: Product used for unknown indication
     Dosage: 20 MG, QD
     Route: 048
  13. ROSUVASTATIN [Concomitant]
     Active Substance: ROSUVASTATIN
     Indication: Dyslipidaemia
     Dosage: 200 MG, QD
     Route: 048
  14. DIVALPROEX SODIUM [Concomitant]
     Active Substance: DIVALPROEX SODIUM
     Indication: Bipolar disorder
     Dosage: 500 MG, QD
     Route: 048
  15. DIVALPROEX SODIUM [Concomitant]
     Active Substance: DIVALPROEX SODIUM
     Dosage: 1000 MG
     Route: 048

REACTIONS (3)
  - Anticholinergic syndrome [Unknown]
  - Toxicity to various agents [Unknown]
  - Sedation complication [Unknown]
